FAERS Safety Report 5740180-9 (Version None)
Quarter: 2008Q2

REPORT INFORMATION
  Report Type: 
  Country: None (occurrence: None)
  Receive Date: 20080516
  Receipt Date: 20080507
  Transmission Date: 20081010
  Serious: Yes (Congenital Anomaly)
  Sender: FDA-Public Use
  Company Number: GB-ABBOTT-08P-167-0450903-00

PATIENT
  Sex: Male
  Weight: 3.7 kg

DRUGS (1)
  1. VALPROIC ACID [Suspect]
     Indication: DRUG EXPOSURE DURING PREGNANCY
     Route: 064

REACTIONS (28)
  - ABNORMAL BEHAVIOUR [None]
  - AGGRESSION [None]
  - ATTENTION-SEEKING BEHAVIOUR [None]
  - CONGENITAL NAIL DISORDER [None]
  - CONGENITAL NOSE MALFORMATION [None]
  - CONGENITAL ORAL MALFORMATION [None]
  - DISTURBANCE IN ATTENTION [None]
  - DRUG EXPOSURE DURING PREGNANCY [None]
  - DYSMORPHISM [None]
  - EMOTIONAL DISORDER [None]
  - EXPRESSIVE LANGUAGE DISORDER [None]
  - FEEDING DISORDER NEONATAL [None]
  - FOETAL ANTICONVULSANT SYNDROME [None]
  - FOOT DEFORMITY [None]
  - HEMICEPHALALGIA [None]
  - HYPERACUSIS [None]
  - JOINT INSTABILITY [None]
  - LIP DISORDER [None]
  - MIGRAINE [None]
  - NAUSEA [None]
  - PALLOR [None]
  - PERSONALITY DISORDER [None]
  - PHONOLOGICAL DISORDER [None]
  - SKULL MALFORMATION [None]
  - SPEECH DISORDER [None]
  - TREATMENT NONCOMPLIANCE [None]
  - UNEVALUABLE EVENT [None]
  - VOMITING [None]
